FAERS Safety Report 17807195 (Version 1)
Quarter: 2020Q2

REPORT INFORMATION
  Report Type: Spontaneous
  Country: CN (occurrence: CN)
  Receive Date: 20200520
  Receipt Date: 20200520
  Transmission Date: 20200714
  Serious: Yes (Death, Other)
  Sender: FDA-Public Use
  Company Number: CN-ASTELLAS-2020US017406

PATIENT
  Age: 40 Year
  Sex: Female

DRUGS (7)
  1. IMIPENEM / CILASTATINA [Concomitant]
     Active Substance: CILASTATIN SODIUM\IMIPENEM
     Indication: INFECTION
     Dosage: 0.2 G, ONCE DAILY
     Route: 042
  2. MICAFUNGIN. [Suspect]
     Active Substance: MICAFUNGIN SODIUM
     Indication: RHINOCEREBRAL MUCORMYCOSIS
     Route: 065
  3. VANCOMYCIN [Concomitant]
     Active Substance: VANCOMYCIN
     Indication: INFECTION
     Route: 042
  4. VORICONAZOLE. [Concomitant]
     Active Substance: VORICONAZOLE
     Indication: INFECTION
     Dosage: 0.4 G, ONCE DAILY
     Route: 042
  5. AMPHOTERICIN B, LIPOSOME [Suspect]
     Active Substance: AMPHOTERICIN B
     Indication: RHINOCEREBRAL MUCORMYCOSIS
     Route: 042
     Dates: start: 201104, end: 201104
  6. AMPHOTERICIN B, LIPOSOME [Suspect]
     Active Substance: AMPHOTERICIN B
     Route: 042
     Dates: start: 201104
  7. CASPOFUNGIN [Concomitant]
     Active Substance: CASPOFUNGIN
     Indication: INFECTION
     Route: 042

REACTIONS (2)
  - Drug ineffective [Fatal]
  - Off label use [Recovered/Resolved]

NARRATIVE: CASE EVENT DATE: 2011
